FAERS Safety Report 8916350 (Version 1)
Quarter: 2012Q4

REPORT INFORMATION
  Report Type: 
  Country: US (occurrence: US)
  Receive Date: 20121120
  Receipt Date: 20121120
  Transmission Date: 20130627
  Serious: No
  Sender: FDA-Public Use
  Company Number: US-009507513-1211USA007702

PATIENT
  Age: 38 Year
  Sex: Female

DRUGS (6)
  1. SAPHRIS [Suspect]
     Indication: SCHIZOAFFECTIVE DISORDER
     Dosage: 5 mg, qd
     Route: 060
  2. SAPHRIS [Suspect]
     Dosage: 5 mg, tid
     Route: 060
  3. LURASIDONE HYDROCHLORIDE [Concomitant]
     Dosage: 160 mg, UNK
  4. PROZAC [Concomitant]
     Dosage: 60 mg, UNK
  5. RISPERIDONE [Concomitant]
     Dosage: 4 mg, UNK
  6. KLONOPIN [Concomitant]
     Dosage: UNK

REACTIONS (1)
  - Angioedema [Recovered/Resolved]
